FAERS Safety Report 6791348-4 (Version None)
Quarter: 2010Q2

REPORT INFORMATION
  Report Type: 
  Country: None (occurrence: None)
  Receive Date: 20100618
  Receipt Date: 20100614
  Transmission Date: 20101027
  Serious: Yes (Other)
  Sender: FDA-Public Use
  Company Number: 2010SP018806

PATIENT
  Age: 26 Year
  Sex: Male
  Weight: 86.1834 kg

DRUGS (3)
  1. SAPHRIS [Suspect]
     Indication: PSYCHOTIC DISORDER
     Dosage: 5 MG; BID; SL
     Route: 060
     Dates: start: 20100312, end: 20100312
  2. VYVANSE [Concomitant]
  3. SEROQUEL XR [Concomitant]

REACTIONS (6)
  - ANXIETY [None]
  - ARRHYTHMIA [None]
  - DIZZINESS [None]
  - PALLOR [None]
  - PALPITATIONS [None]
  - SYNCOPE [None]
